FAERS Safety Report 25388213 (Version 1)
Quarter: 2025Q2

REPORT INFORMATION
  Report Type: Spontaneous
  Country: US (occurrence: US)
  Receive Date: 20250603
  Receipt Date: 20250603
  Transmission Date: 20250717
  Serious: Yes (Other)
  Sender: ALKEM
  Company Number: US-ALKEM LABORATORIES LIMITED-US-ALKEM-2025-03484

PATIENT
  Age: 45 Year
  Sex: Male

DRUGS (2)
  1. VANCOMYCIN [Suspect]
     Active Substance: VANCOMYCIN
     Indication: Osteomyelitis
     Route: 042
  2. CEFEPIME [Concomitant]
     Active Substance: CEFEPIME HYDROCHLORIDE
     Indication: Osteomyelitis
     Route: 065

REACTIONS (3)
  - Cutaneous vasculitis [Recovering/Resolving]
  - Acute kidney injury [Recovering/Resolving]
  - Condition aggravated [Recovering/Resolving]
